FAERS Safety Report 4462274-0 (Version None)
Quarter: 2004Q3

REPORT INFORMATION
  Report Type: 
  Country: None (occurrence: None)
  Receive Date: 20040929
  Receipt Date: 20040914
  Transmission Date: 20050211
  Serious: Yes (Hospitalization, Other)
  Sender: FDA-Public Use
  Company Number: SA-GLAXOSMITHKLINE-B0346031A

PATIENT
  Age: 51 Year
  Sex: Female
  Weight: 86.5 kg

DRUGS (5)
  1. AVANDIA [Suspect]
     Dosage: 4MG PER DAY
     Route: 048
     Dates: start: 20030106, end: 20040914
  2. LIPITOR [Concomitant]
     Dosage: 40MG PER DAY
     Dates: start: 20040702, end: 20040914
  3. ANGIOTENSIN [Concomitant]
     Indication: HYPERTENSION
  4. INSULIN [Concomitant]
  5. LESCOL [Concomitant]

REACTIONS (7)
  - BLOOD CREATINE PHOSPHOKINASE INCREASED [None]
  - BLOOD CREATINE PHOSPHOKINASE MB INCREASED [None]
  - BLOOD LACTATE DEHYDROGENASE INCREASED [None]
  - BLOOD POTASSIUM INCREASED [None]
  - DYSPNOEA [None]
  - OLIGURIA [None]
  - RHABDOMYOLYSIS [None]
